FAERS Safety Report 7298430-6 (Version None)
Quarter: 2011Q1

REPORT INFORMATION
  Report Type: 
  Country: None (occurrence: None)
  Receive Date: 20110217
  Receipt Date: 20110211
  Transmission Date: 20110831
  Serious: Yes (Other)
  Sender: FDA-Public Use
  Company Number: CA-JNJFOC-20100500603

PATIENT
  Sex: Female
  Weight: 41.3 kg

DRUGS (4)
  1. REMICADE [Suspect]
     Indication: RHEUMATOID ARTHRITIS
     Route: 042
  2. METHOTREXATE [Concomitant]
  3. REMICADE [Suspect]
     Route: 042
  4. REMICADE [Suspect]
     Dosage: RECEIVED A TOTAL OF 3 INFUSIONS AT WEEKS 0, 2, AND 6
     Route: 042

REACTIONS (6)
  - PRESYNCOPE [None]
  - PRURITUS [None]
  - BLOOD PRESSURE DECREASED [None]
  - INFUSION RELATED REACTION [None]
  - VOMITING [None]
  - FLUSHING [None]
